FAERS Safety Report 18237210 (Version 1)
Quarter: 2020Q3

REPORT INFORMATION
  Report Type: Spontaneous
  Country: FR (occurrence: FR)
  Receive Date: 20200907
  Receipt Date: 20200907
  Transmission Date: 20201103
  Serious: Yes (Life-Threatening)
  Sender: FDA-Public Use
  Company Number: FR-ROCHE-2672540

PATIENT
  Age: 73 Year
  Sex: Female

DRUGS (5)
  1. DOXORUBICINE TEVA [Suspect]
     Active Substance: DOXORUBICIN
     Indication: B-CELL LYMPHOMA
     Dosage: ON 03/MAY/2012, MOST RECENT DOSE
     Route: 041
     Dates: start: 20111130
  2. PREDNISONE. [Suspect]
     Active Substance: PREDNISONE
     Indication: B-CELL LYMPHOMA
     Dosage: ON 03/MAY/2012, MOST RECENT DOSE
     Route: 041
     Dates: start: 20111130
  3. MABTHERA [Suspect]
     Active Substance: RITUXIMAB
     Indication: B-CELL LYMPHOMA
     Dosage: ON 02/MAY/2012, MOST RECENT DOSE
     Route: 041
     Dates: start: 20111129
  4. ENDOXAN [Suspect]
     Active Substance: CYCLOPHOSPHAMIDE
     Indication: B-CELL LYMPHOMA
     Dosage: ON 03/MAY/2012, MOST RECENT DOSE
     Route: 041
     Dates: start: 20111130
  5. VINCRISTINE TEVA [Suspect]
     Active Substance: VINCRISTINE
     Indication: B-CELL LYMPHOMA
     Dosage: ON 03/MAY/2012, MOST RECENT DOSE
     Route: 041
     Dates: start: 20111130

REACTIONS (5)
  - Cardiomyopathy [Recovered/Resolved with Sequelae]
  - Atrial fibrillation [Recovered/Resolved with Sequelae]
  - Pyelonephritis [Recovered/Resolved]
  - Cardiac failure [Recovered/Resolved with Sequelae]
  - Febrile neutropenia [Recovered/Resolved]

NARRATIVE: CASE EVENT DATE: 20120512
